FAERS Safety Report 4944272-3 (Version None)
Quarter: 2006Q1

REPORT INFORMATION
  Report Type: 
  Country: None (occurrence: None)
  Receive Date: 20060315
  Receipt Date: 20060215
  Transmission Date: 20060701
  Serious: Yes (Hospitalization, Disabling)
  Sender: FDA-Public Use
  Company Number: US-GLAXOSMITHKLINE-A0593839A

PATIENT
  Age: 24 Year
  Sex: Female
  Weight: 108.2 kg

DRUGS (7)
  1. VALTREX [Suspect]
     Indication: HERPES SIMPLEX
     Dosage: 500MG PER DAY
     Route: 048
     Dates: start: 20051212, end: 20060119
  2. EFFEXOR XR [Suspect]
     Indication: DEPRESSION
     Dosage: 150MG PER DAY
     Route: 048
  3. TERBUTALINE [Suspect]
     Indication: PROPHYLAXIS
     Route: 048
     Dates: start: 20051230, end: 20060120
  4. PRENATE [Concomitant]
     Indication: PREGNANCY
     Dosage: 1CAP PER DAY
     Dates: start: 20050624
  5. ZANTAC [Concomitant]
     Indication: GASTROOESOPHAGEAL REFLUX DISEASE
     Dosage: 150MG PER DAY
     Route: 048
     Dates: start: 20060104, end: 20060119
  6. TERAZOL CREAM [Concomitant]
     Indication: VULVOVAGINAL MYCOTIC INFECTION
     Dosage: 1APP PER DAY
     Dates: start: 20050906, end: 20050917
  7. CORTISPORIN [Concomitant]
     Indication: EAR PAIN
     Dosage: 4DROP FOUR TIMES PER DAY
     Route: 001
     Dates: start: 20051202, end: 20051209

REACTIONS (10)
  - ABDOMINAL PAIN [None]
  - ABDOMINAL PAIN UPPER [None]
  - ACUTE FATTY LIVER OF PREGNANCY [None]
  - ANOREXIA [None]
  - HEPATIC ENZYME INCREASED [None]
  - HERPES SIMPLEX [None]
  - NAUSEA [None]
  - NORMAL DELIVERY [None]
  - PREMATURE LABOUR [None]
  - SKIN LESION [None]
